FAERS Safety Report 10088792 (Version 3)
Quarter: 2014Q2

REPORT INFORMATION
  Report Type: Report from Study
  Country: US (occurrence: US)
  Receive Date: 20140421
  Receipt Date: 20140627
  Transmission Date: 20141212
  Serious: Yes (Hospitalization)
  Sender: FDA-Public Use
  Company Number: US-BIOGENIDEC-2014BI035392

PATIENT
  Age: 55 Year
  Sex: Female

DRUGS (17)
  1. TECFIDERA [Suspect]
     Indication: MULTIPLE SCLEROSIS
     Route: 048
     Dates: start: 201307
  2. TECFIDERA [Suspect]
     Indication: MULTIPLE SCLEROSIS
     Route: 048
     Dates: start: 20140115, end: 20140129
  3. TECFIDERA [Suspect]
     Indication: MULTIPLE SCLEROSIS
     Route: 048
     Dates: start: 20140130
  4. HYDROCODONE [Concomitant]
  5. TOPAMAX [Concomitant]
  6. LIPITOR [Concomitant]
  7. PREMARIN [Concomitant]
  8. L-THYROXINE [Concomitant]
  9. LORAZEPAM [Concomitant]
  10. NEXIUM [Concomitant]
  11. FUROSEMIDE [Concomitant]
  12. POTASSIUM CHLORIDE [Concomitant]
  13. LUNESTA [Concomitant]
  14. TOPROL [Concomitant]
  15. METHOCARBAMOL [Concomitant]
  16. FENTANYL [Concomitant]
  17. CYMBALTA [Concomitant]

REACTIONS (5)
  - Weight decreased [Unknown]
  - Incorrect dose administered [Recovered/Resolved]
  - Hypokalaemia [Recovered/Resolved]
  - Multiple sclerosis [Recovered/Resolved]
  - Trigeminal neuralgia [Not Recovered/Not Resolved]
